FAERS Safety Report 5492304-9 (Version None)
Quarter: 2007Q4

REPORT INFORMATION
  Report Type: 
  Country: None (occurrence: None)
  Receive Date: 20071022
  Receipt Date: 20071017
  Transmission Date: 20080405
  Serious: Yes (Other)
  Sender: FDA-Public Use
  Company Number: US-SANOFI-SYNTHELABO-F01200700182

PATIENT
  Sex: Female
  Weight: 66.8 kg

DRUGS (5)
  1. CA/MG OR PLACEBO [Suspect]
     Route: 042
     Dates: start: 20060515, end: 20060515
  2. LEUCOVORIN [Suspect]
     Route: 042
     Dates: start: 20060515, end: 20060515
  3. OXALIPLATIN [Suspect]
     Indication: COLORECTAL CANCER METASTATIC
     Route: 042
     Dates: start: 20060515, end: 20060515
  4. BEVACIZUMAB [Suspect]
     Route: 042
     Dates: start: 20060515, end: 20060515
  5. FLUOROURACIL [Suspect]
     Dosage: 2400 MG/M2 IV ON DAY 1 AND DAY 2, Q2W
     Route: 042
     Dates: start: 20060515, end: 20060516

REACTIONS (1)
  - TRANSIENT ISCHAEMIC ATTACK [None]
